FAERS Safety Report 16473258 (Version 1)
Quarter: 2019Q2

REPORT INFORMATION
  Report Type: Spontaneous
  Country: US (occurrence: US)
  Receive Date: 20190625
  Receipt Date: 20190625
  Transmission Date: 20190711
  Serious: Yes (Hospitalization)
  Sender: FDA-Public Use
  Company Number: US-GLAXOSMITHKLINE-US2019112977

PATIENT
  Sex: Female

DRUGS (3)
  1. COREG [Suspect]
     Active Substance: CARVEDILOL
     Indication: PRODUCT USED FOR UNKNOWN INDICATION
     Dosage: 3.125 UNIT NOT REPORTED UNK
     Route: 048
  2. COREG [Suspect]
     Active Substance: CARVEDILOL
     Dosage: UNK
  3. CARVEDILOL. [Suspect]
     Active Substance: CARVEDILOL
     Indication: PRODUCT USED FOR UNKNOWN INDICATION
     Dosage: 3.125 UNIT NOT REPORTED  UNK
     Route: 048

REACTIONS (4)
  - Cholelithotomy [Unknown]
  - Cholelithiasis [Recovered/Resolved]
  - Pruritus [Recovered/Resolved]
  - Gallbladder operation [Recovered/Resolved]
